FAERS Safety Report 6164115-2 (Version None)
Quarter: 2009Q2

REPORT INFORMATION
  Report Type: 
  Country: None (occurrence: None)
  Receive Date: 20090422
  Receipt Date: 20090416
  Transmission Date: 20091009
  Serious: Yes (Other)
  Sender: FDA-Public Use
  Company Number: B0570173A

PATIENT
  Age: 47 Year
  Sex: Female
  Weight: 76 kg

DRUGS (4)
  1. AMOXICILLIN [Suspect]
     Route: 048
     Dates: start: 20090220, end: 20090220
  2. CALCICHEW D3 [Concomitant]
     Route: 048
  3. IBUPROFEN [Concomitant]
     Dosage: 1200MG PER DAY
     Route: 048
  4. LANSOPRAZOLE [Concomitant]
     Dosage: 30MG PER DAY
     Route: 048

REACTIONS (4)
  - DIZZINESS [None]
  - FEELING HOT [None]
  - FLUSHING [None]
  - URTICARIA [None]
